FAERS Safety Report 9168397 (Version 6)
Quarter: 2013Q3

REPORT INFORMATION
  Report Type: Report from Study
  Country: DE (occurrence: DE)
  Receive Date: 20130318
  Receipt Date: 20130924
  Transmission Date: 20140515
  Serious: Yes (Hospitalization)
  Sender: FDA-Public Use
  Company Number: DE-JNJFOC-20130310408

PATIENT
  Age: 76 Year
  Sex: Male
  Weight: 72 kg

DRUGS (9)
  1. RIVAROXABAN [Suspect]
     Indication: ATRIAL FIBRILLATION
     Route: 048
     Dates: start: 20130307
  2. RIVAROXABAN [Suspect]
     Indication: ATRIAL FIBRILLATION
     Route: 048
     Dates: start: 20130117, end: 20130305
  3. RIVAROXABAN [Suspect]
     Indication: CEREBROVASCULAR ACCIDENT PROPHYLAXIS
     Route: 048
     Dates: start: 20130307
  4. RIVAROXABAN [Suspect]
     Indication: CEREBROVASCULAR ACCIDENT PROPHYLAXIS
     Route: 048
     Dates: start: 20130117, end: 20130305
  5. DRONEDARONE [Concomitant]
     Route: 065
     Dates: start: 20130217
  6. CONCOR [Concomitant]
     Route: 065
     Dates: start: 20090101
  7. ASS [Concomitant]
     Route: 065
     Dates: start: 201301
  8. NITRENDIPINE [Concomitant]
     Route: 065
     Dates: start: 20120324
  9. PANTOPRAZOLE [Concomitant]
     Route: 065
     Dates: start: 20130305

REACTIONS (3)
  - Implant site haematoma [Recovered/Resolved]
  - Dizziness [Recovered/Resolved]
  - Asthenia [Recovered/Resolved]
